FAERS Safety Report 10081844 (Version 4)
Quarter: 2014Q2

REPORT INFORMATION
  Report Type: Report from Study
  Country: US (occurrence: US)
  Receive Date: 20140416
  Receipt Date: 20140528
  Transmission Date: 20141212
  Serious: Yes (Hospitalization)
  Sender: FDA-Public Use
  Company Number: US-ACTELION-A-US2014-96952

PATIENT
  Age: 69 Year
  Sex: Female

DRUGS (2)
  1. TRACLEER [Suspect]
     Indication: PULMONARY HYPERTENSION
     Dosage: 125 MG, QD
     Route: 048
  2. TADALAFIL [Concomitant]

REACTIONS (11)
  - Diabetes mellitus inadequate control [Recovering/Resolving]
  - Chronic obstructive pulmonary disease [Recovering/Resolving]
  - Confusional state [Recovering/Resolving]
  - Disorientation [Recovering/Resolving]
  - Hyponatraemia [Recovering/Resolving]
  - Asthenia [Recovering/Resolving]
  - Oedema peripheral [Recovering/Resolving]
  - Pulmonary hypertension [Recovering/Resolving]
  - Right ventricular failure [Recovering/Resolving]
  - Fluid overload [Recovering/Resolving]
  - Malaise [Recovering/Resolving]
